FAERS Safety Report 5997215-8 (Version None)
Quarter: 2008Q4

REPORT INFORMATION
  Report Type: 
  Country: None (occurrence: None)
  Receive Date: 20081212
  Receipt Date: 20081105
  Transmission Date: 20090506
  Serious: No
  Sender: FDA-Public Use
  Company Number: US-ABBOTT-08P-163-0485890-00

PATIENT
  Sex: Male
  Weight: 107.6 kg

DRUGS (3)
  1. HUMIRA [Suspect]
     Indication: COLITIS
     Route: 058
     Dates: start: 20080915
  2. MERCAPTOPURINE [Concomitant]
     Indication: COLITIS
     Route: 048
  3. MESALAMINE [Concomitant]
     Indication: COLITIS
     Dosage: UNSURE OF STRENGTH
     Route: 048

REACTIONS (2)
  - ARTHRALGIA [None]
  - OEDEMA PERIPHERAL [None]
